FAERS Safety Report 9571291 (Version 2)
Quarter: 2013Q4

REPORT INFORMATION
  Report Type: Spontaneous
  Country: GB (occurrence: GB)
  Receive Date: 20131001
  Receipt Date: 20131001
  Transmission Date: 20140711
  Serious: Yes (Other)
  Sender: FDA-Public Use
  Company Number: GB-ASTELLAS-2013EU007114

PATIENT
  Age: 49 Year
  Sex: Female
  Weight: 99 kg

DRUGS (5)
  1. BETMIGA [Suspect]
     Dosage: 50 MG, UID/QD
     Route: 048
     Dates: start: 201306, end: 201307
  2. ISOSORBIDE MONONITRATE [Concomitant]
     Dosage: UNK
     Route: 065
  3. QUININE SULFATE [Concomitant]
     Dosage: UNK
     Route: 065
  4. LISINOPRIL [Concomitant]
     Dosage: UNK
     Route: 065
  5. ROSUVASTATIN [Concomitant]
     Dosage: UNK
     Route: 065

REACTIONS (1)
  - Oedema peripheral [Recovered/Resolved]
